FAERS Safety Report 7639181-5 (Version None)
Quarter: 2011Q3

REPORT INFORMATION
  Report Type: 
  Country: None (occurrence: None)
  Receive Date: 20110721
  Receipt Date: 20110712
  Transmission Date: 20111222
  Serious: Yes (Other)
  Sender: FDA-Public Use
  Company Number: IMP_05406_2011

PATIENT
  Age: 22 Year
  Sex: Male

DRUGS (7)
  1. BUPROPION HCL [Suspect]
     Indication: BIPOLAR II DISORDER
     Dosage: (150 MG QD), (150 MG BID)
  2. BUPROPION HCL [Suspect]
     Indication: OFF LABEL USE
     Dosage: (150 MG QD), (150 MG BID)
  3. BUPROPION HCL [Suspect]
     Indication: BIPOLAR II DISORDER
     Dosage: (150 MG QD), (150 MG BID)
  4. BUPROPION HCL [Suspect]
     Indication: OFF LABEL USE
     Dosage: (150 MG QD), (150 MG BID)
  5. OLANZAPINE [Concomitant]
  6. CLONAZEPAM [Concomitant]
  7. LITHIUM [Concomitant]

REACTIONS (6)
  - EUPHORIC MOOD [None]
  - GRANDIOSITY [None]
  - LOGORRHOEA [None]
  - LIBIDO INCREASED [None]
  - PSYCHOMOTOR HYPERACTIVITY [None]
  - HYPOMANIA [None]
